FAERS Safety Report 6518530-5 (Version None)
Quarter: 2009Q4

REPORT INFORMATION
  Report Type: 
  Country: None (occurrence: None)
  Receive Date: 20091226
  Receipt Date: 20091222
  Transmission Date: 20100525
  Serious: Yes (Death, Other)
  Sender: FDA-Public Use
  Company Number: FR-JNJFOC-20090803599

PATIENT
  Age: 87 Year
  Sex: Female
  Weight: 29 kg

DRUGS (4)
  1. HALDOL [Suspect]
     Indication: ABNORMAL BEHAVIOUR
     Route: 065
  2. HALDOL [Suspect]
     Indication: IRRITABILITY
     Route: 065
  3. INIPOMP [Concomitant]
     Route: 065
  4. LASILIX [Concomitant]
     Route: 065

REACTIONS (2)
  - DEATH [None]
  - RASH [None]
